FAERS Safety Report 7607547-5 (Version None)
Quarter: 2011Q3

REPORT INFORMATION
  Report Type: 
  Country: None (occurrence: None)
  Receive Date: 20110713
  Receipt Date: 20110414
  Transmission Date: 20111222
  Serious: No
  Sender: FDA-Public Use
  Company Number: US-BAYER-2011-033407

PATIENT
  Sex: Female

DRUGS (6)
  1. ALEVE (CAPLET) [Suspect]
     Indication: BACK PAIN
  2. EXCEDRIN (MIGRAINE) [Concomitant]
     Indication: BACK PAIN
  3. SPINAL DECOMPRESSION [Concomitant]
     Indication: BACK PAIN
  4. MUSCLE RELAXANTS [Concomitant]
     Indication: BACK PAIN
  5. HYDROCODONE [Concomitant]
     Indication: BACK PAIN
  6. EPIDURAL INJECTIONS [Concomitant]
     Indication: BACK PAIN

REACTIONS (1)
  - BACK PAIN [None]
